FAERS Safety Report 10421041 (Version 2)
Quarter: 2014Q4

REPORT INFORMATION
  Report Type: Spontaneous
  Country: US (occurrence: None)
  Receive Date: 20140722
  Receipt Date: 20141121
  Transmission Date: 20150528
  Serious: No
  Sender: FDA-Public Use
  Company Number: 163-10004-14063919

PATIENT
  Age: 67 Year
  Sex: Male

DRUGS (1)
  1. OTEZLA [Suspect]
     Active Substance: APREMILAST
     Indication: PSORIATIC ARTHROPATHY
     Route: 048
     Dates: start: 201405

REACTIONS (6)
  - Bowel movement irregularity [None]
  - Decreased appetite [None]
  - Flatulence [None]
  - Weight decreased [None]
  - Nausea [None]
  - Eructation [None]

NARRATIVE: CASE EVENT DATE: 2014
